FAERS Safety Report 12411465 (Version 1)
Quarter: 2016Q2

REPORT INFORMATION
  Report Type: Spontaneous
  Country: None (occurrence: US)
  Receive Date: 20160527
  Receipt Date: 20160527
  Transmission Date: 20160815
  Serious: Yes (Hospitalization, Other)
  Sender: FDA-Public Use
  Company Number: US-FRENSENIUS MEDICAL CARE RENAL THERAPIES GROUP-FMC-1605-000009

PATIENT
  Age: 35 Year
  Sex: Female
  Weight: 108 kg

DRUGS (1)
  1. DELFLEX WITH DEXTROSE 2.5% [Suspect]
     Active Substance: CALCIUM CHLORIDE\DEXTROSE\MAGNESIUM CHLORIDE\SODIUM CHLORIDE\SODIUM LACTATE
     Indication: END STAGE RENAL DISEASE
     Route: 033

REACTIONS (2)
  - Peritonitis [Recovered/Resolved]
  - Gastrointestinal wall thickening [None]

NARRATIVE: CASE EVENT DATE: 20160502
